FAERS Safety Report 14100488 (Version 1)
Quarter: 2017Q4

REPORT INFORMATION
  Report Type: Spontaneous
  Country: US (occurrence: US)
  Receive Date: 20171017
  Receipt Date: 20171017
  Transmission Date: 20180321
  Serious: No
  Sender: FDA-Public Use
  Company Number: US-009507513-1710USA008462

PATIENT
  Sex: Male

DRUGS (1)
  1. BELSOMRA [Suspect]
     Active Substance: SUVOREXANT
     Indication: INSOMNIA
     Dosage: ONE UNSPECIFIED TABLET BEFORE BEDTIME
     Route: 048
     Dates: end: 20171016

REACTIONS (3)
  - Depression [Unknown]
  - Crying [Unknown]
  - Irritability [Unknown]

NARRATIVE: CASE EVENT DATE: 201710
